FAERS Safety Report 8058663-8 (Version None)
Quarter: 2012Q1

REPORT INFORMATION
  Report Type: 
  Country: None (occurrence: None)
  Receive Date: 20120120
  Receipt Date: 20120110
  Transmission Date: 20120608
  Serious: Yes (Hospitalization)
  Sender: FDA-Public Use
  Company Number: US-BAYER-2010-001233

PATIENT
  Age: 26 Year
  Sex: Female

DRUGS (5)
  1. TOPAMAX [Concomitant]
     Dosage: 50 MG, QD
  2. TRAZODONE HCL [Concomitant]
     Dosage: 50 MG, QD
  3. YASMIN [Suspect]
     Indication: CONTRACEPTION
     Dosage: UNK
     Dates: start: 20080601, end: 20090401
  4. CYMBALTA [Concomitant]
     Dosage: 30 MG, QD
  5. IBUPROFEN [Concomitant]
     Dosage: 800 MG, TID

REACTIONS (2)
  - PANCREATITIS [None]
  - GALLBLADDER DISORDER [None]
